FAERS Safety Report 25658321 (Version 1)
Quarter: 2025Q3

REPORT INFORMATION
  Report Type: Spontaneous
  Country: TW (occurrence: TW)
  Receive Date: 20250808
  Receipt Date: 20250808
  Transmission Date: 20251021
  Serious: Yes (Other)
  Sender: STRIDES
  Company Number: TW-STRIDES ARCOLAB LIMITED-2025SP009869

PATIENT
  Age: 68 Year
  Sex: Male

DRUGS (5)
  1. PREDNISOLONE [Suspect]
     Active Substance: PREDNISOLONE
     Indication: Hypersensitivity
     Route: 048
  2. PREDNISOLONE [Suspect]
     Active Substance: PREDNISOLONE
     Route: 048
  3. DOXYCYCLINE [Suspect]
     Active Substance: DOXYCYCLINE
     Indication: Folliculitis
     Route: 065
  4. METHYLPREDNISOLONE [Suspect]
     Active Substance: METHYLPREDNISOLONE
     Indication: Folliculitis
     Route: 042
  5. TREPROSTINIL [Concomitant]
     Active Substance: TREPROSTINIL
     Indication: Idiopathic pulmonary fibrosis

REACTIONS (4)
  - Dermatitis exfoliative generalised [Recovered/Resolved]
  - Fungal skin infection [Recovered/Resolved]
  - Condition aggravated [Unknown]
  - Therapy partial responder [Unknown]
